FAERS Safety Report 8625537-0 (Version None)
Quarter: 2012Q3

REPORT INFORMATION
  Report Type: 
  Country: None (occurrence: None)
  Receive Date: 20120827
  Receipt Date: 20120823
  Transmission Date: 20120928
  Serious: Yes (Hospitalization)
  Sender: FDA-Public Use
  Company Number: US-ROCHE-1096642

PATIENT
  Sex: Female
  Weight: 84.898 kg

DRUGS (3)
  1. METHOTREXATE [Suspect]
     Indication: BREAST CANCER
     Route: 048
     Dates: start: 20120615, end: 20120801
  2. AVASTIN [Suspect]
     Indication: BREAST CANCER
     Dosage: LAST DOSE PRIOR TO EVENT - 27/JUL/2012
     Route: 042
     Dates: start: 20120615
  3. CYCLOPHOSPHAMIDE [Suspect]
     Indication: BREAST CANCER
     Route: 048
     Dates: start: 20120615, end: 20120801

REACTIONS (1)
  - BREAST INFECTION [None]
